FAERS Safety Report 9893505 (Version 1)
Quarter: 2014Q1

REPORT INFORMATION
  Report Type: Spontaneous
  Country: US (occurrence: US)
  Receive Date: 20140213
  Receipt Date: 20140213
  Transmission Date: 20141002
  Serious: Yes (Other)
  Sender: FDA-Public Use
  Company Number: PHHY2014US014860

PATIENT
  Sex: Female
  Weight: 2.45 kg

DRUGS (4)
  1. CICLOSPORIN [Suspect]
     Dosage: UNK
     Route: 064
  2. TERBUTALINE [Suspect]
     Route: 064
  3. CARBENICILLIN INDANYL SODIUM [Suspect]
     Route: 064
  4. METHYLPREDNISOLONE [Suspect]
     Dosage: UNK
     Route: 064

REACTIONS (4)
  - Low birth weight baby [Unknown]
  - Premature baby [Unknown]
  - Leukopenia [Recovered/Resolved]
  - Foetal exposure during pregnancy [Unknown]
